FAERS Safety Report 7948800-5 (Version None)
Quarter: 2011Q4

REPORT INFORMATION
  Report Type: 
  Country: None (occurrence: None)
  Receive Date: 20111128
  Receipt Date: 20111128
  Transmission Date: 20120403
  Serious: Yes (Hospitalization)
  Sender: FDA-Public Use
  Company Number: None

PATIENT
  Age: 66 Year
  Sex: Male
  Weight: 74 kg

DRUGS (4)
  1. FLUDARABINE PHOSPHATE [Suspect]
     Indication: NON-HODGKIN'S LYMPHOMA
     Dosage: 25MG/M2, DAY1-5/Q28, IV
     Route: 042
     Dates: start: 20111028, end: 20111029
  2. FLUDARABINE PHOSPHATE [Suspect]
     Indication: DIFFUSE LARGE B-CELL LYMPHOMA
     Dosage: 25MG/M2, DAY1-5/Q28, IV
     Route: 042
     Dates: start: 20111028, end: 20111029
  3. METHOXYAMINE [Suspect]
     Indication: NON-HODGKIN'S LYMPHOMA
     Dosage: 15MG/M2, DAY2/Q28, IV
     Route: 042
     Dates: start: 20111026
  4. METHOXYAMINE [Suspect]
     Indication: DIFFUSE LARGE B-CELL LYMPHOMA
     Dosage: 15MG/M2, DAY2/Q28, IV
     Route: 042
     Dates: start: 20111026

REACTIONS (2)
  - WHITE BLOOD CELL COUNT INCREASED [None]
  - PULMONARY EMBOLISM [None]
